FAERS Safety Report 9160822 (Version 2)
Quarter: 2013Q1

REPORT INFORMATION
  Report Type: Spontaneous
  Country: US (occurrence: None)
  Receive Date: 20130215
  Receipt Date: 20130215
  Transmission Date: 20140127
  Serious: Yes (Life-Threatening, Hospitalization)
  Sender: FDA-Public Use
  Company Number: CIO13004748

PATIENT
  Sex: Female

DRUGS (4)
  1. NYQUIL COLD + FLU [Suspect]
     Route: 048
     Dates: end: 20130125
  2. Z-PAK (AZITHROMYCIN) [Concomitant]
  3. MORPHINE [Concomitant]
  4. BENZONATATE (BENZONATATE) [Concomitant]

REACTIONS (7)
  - Cardiac arrest [None]
  - Hypopnoea [None]
  - Somnolence [None]
  - Unresponsive to stimuli [None]
  - Renal failure [None]
  - Labelled drug-disease interaction medication error [None]
  - Dialysis [None]
